FAERS Safety Report 4535870-X (Version None)
Quarter: 2004Q4

REPORT INFORMATION
  Report Type: 
  Country: None (occurrence: None)
  Receive Date: 20041223
  Receipt Date: 20041220
  Transmission Date: 20050328
  Serious: Yes (Hospitalization)
  Sender: FDA-Public Use
  Company Number: PHFR2004GB04639

PATIENT
  Age: 72 Year
  Sex: Female

DRUGS (10)
  1. METOPROLOL [Suspect]
     Indication: BLOOD PRESSURE INCREASED
     Dosage: 100 MG, BID
     Route: 048
  2. TILDIEM [Suspect]
     Indication: HYPERTENSION
     Dosage: 400MG/DAY
     Route: 048
     Dates: end: 20041209
  3. SOLPADOL [Concomitant]
     Indication: PAIN
     Dosage: 1-2 QID PRN
     Route: 065
  4. QUININE SULPHATE [Concomitant]
     Indication: MUSCLE CRAMP
     Dosage: 300MG/NOCTE
     Route: 065
  5. ISOSORBIDE MONONITRATE [Concomitant]
     Indication: MYOCARDIAL ISCHAEMIA
     Dosage: 20 MG, BID
     Route: 065
  6. LISINOPRIL [Concomitant]
     Indication: BLOOD PRESSURE INCREASED
     Dosage: 5MG/MANE
     Route: 065
  7. ATORVASTATIN [Concomitant]
     Indication: HYPERCHOLESTEROLAEMIA
     Dosage: 10MG/NOCTE
     Route: 065
  8. ASPIRIN [Concomitant]
     Indication: PROPHYLAXIS
     Dosage: 75MG/MANE
     Route: 065
  9. AMITRIPTYLINE [Concomitant]
     Indication: NEUROPATHIC PAIN
     Dosage: 10 MG, BID
     Route: 065
     Dates: end: 20041209
  10. GABAPENTIN [Concomitant]
     Route: 065

REACTIONS (3)
  - CIRCULATORY COLLAPSE [None]
  - HEART RATE DECREASED [None]
  - HYPOTENSION [None]
